FAERS Safety Report 9178120 (Version 4)
Quarter: 2014Q1

REPORT INFORMATION
  Report Type: Report from Study
  Country: DE (occurrence: DE)
  Receive Date: 20130321
  Receipt Date: 20140222
  Transmission Date: 20141002
  Serious: Yes (Hospitalization)
  Sender: FDA-Public Use
  Company Number: DE-ROCHE-1204238

PATIENT
  Sex: Female
  Weight: 67 kg

DRUGS (1)
  1. TOCILIZUMAB [Suspect]
     Indication: RHEUMATOID ARTHRITIS
     Route: 042
     Dates: start: 20120626, end: 20121116

REACTIONS (1)
  - Osteoarthritis [Recovered/Resolved]
